FAERS Safety Report 5471492-4 (Version None)
Quarter: 2007Q3

REPORT INFORMATION
  Report Type: 
  Country: None (occurrence: None)
  Receive Date: 20070928
  Receipt Date: 20061114
  Transmission Date: 20080115
  Serious: Yes (Hospitalization)
  Sender: FDA-Public Use
  Company Number: US-BRISTOL-MYERS SQUIBB COMPANY-13577978

PATIENT
  Age: 27 Year
  Sex: Female
  Weight: 110 kg

DRUGS (5)
  1. DEFINITY [Suspect]
     Indication: ECHOCARDIOGRAM
     Dosage: 3CC
  2. PRILOSEC [Concomitant]
  3. ULTRA MEGA [Concomitant]
  4. OXYCODONE HCL [Concomitant]
  5. ACCELIS [Concomitant]

REACTIONS (5)
  - ARTHRALGIA [None]
  - BACK PAIN [None]
  - DYSPNOEA [None]
  - HEART RATE INCREASED [None]
  - HOT FLUSH [None]
